FAERS Safety Report 12508056 (Version 1)
Quarter: 2016Q2

REPORT INFORMATION
  Report Type: Spontaneous
  Country: None (occurrence: DO)
  Receive Date: 20160629
  Receipt Date: 20160629
  Transmission Date: 20160815
  Serious: Yes (Other)
  Sender: FDA-Public Use
  Company Number: DO-MERCK KGAA-1054395

PATIENT

DRUGS (1)
  1. NOVOTHYROX [Suspect]
     Active Substance: LEVOTHYROXINE SODIUM

REACTIONS (5)
  - Hypothyroidism [None]
  - Hypersensitivity [None]
  - Hyperthyroidism [None]
  - Dysphagia [None]
  - Mood altered [None]
